FAERS Safety Report 5236442-4 (Version None)
Quarter: 2007Q1

REPORT INFORMATION
  Report Type: 
  Country: None (occurrence: None)
  Receive Date: 20070208
  Receipt Date: 20070129
  Transmission Date: 20070707
  Serious: Yes (Hospitalization)
  Sender: FDA-Public Use
  Company Number: GXKR2007ES01255

PATIENT
  Age: 87 Year
  Sex: Male

DRUGS (12)
  1. CITALOPRAM HYDROBROMIDE [Suspect]
     Indication: DEPRESSION
     Dosage: 20 MG, QD
     Dates: start: 20030801, end: 20030901
  2. VENLAFAXIINE HCL [Suspect]
     Indication: DEPRESSION
     Dosage: 75 MG, QD
     Dates: start: 20031101, end: 20031201
  3. OMEPRAZOLE [Suspect]
     Dosage: 20 MG, QD
  4. LOSARTAN POTASSIUM [Concomitant]
  5. CARVEDIOL (CARVEDILOL) [Concomitant]
  6. ALLOPURINOL [Concomitant]
  7. CLOPIDOGREL [Concomitant]
  8. SIMVASTATIN [Concomitant]
  9. ISOSORBIDE MONONITRATE [Concomitant]
  10. TIMOLOL (TIMOLOL) DROPS [Concomitant]
  11. TEBETANE COMPUESTO (ALANINE, AMINOACETIC ACID, GLUTAMIC ACID, PYGEUM A [Concomitant]
  12. ALPRAZOLAM [Concomitant]

REACTIONS (6)
  - ASTHENIA [None]
  - BLOOD OSMOLARITY DECREASED [None]
  - DRUG INTERACTION [None]
  - INAPPROPRIATE ANTIDIURETIC HORMONE SECRETION [None]
  - URINE OSMOLARITY INCREASED [None]
  - WEIGHT DECREASED [None]
